FAERS Safety Report 20826827 (Version 2)
Quarter: 2022Q2

REPORT INFORMATION
  Report Type: Report from Study
  Country: PL (occurrence: PL)
  Receive Date: 20220513
  Receipt Date: 20220531
  Transmission Date: 20220721
  Serious: Yes (Hospitalization)
  Sender: FDA-Public Use
  Company Number: PL-PFIZER INC-202101048096

PATIENT
  Age: 25 Year
  Sex: Male
  Weight: 103 kg

DRUGS (4)
  1. ABROCITINIB [Suspect]
     Active Substance: ABROCITINIB
     Indication: Dermatitis atopic
     Dosage: 200 MG, ONCE A DAY
     Route: 048
     Dates: start: 20181127, end: 20210727
  2. GLYCERIN\MINERAL OIL\PETROLATUM [Concomitant]
     Active Substance: GLYCERIN\MINERAL OIL\PETROLATUM
     Indication: Dermatitis atopic
     Dosage: UNK
     Dates: start: 20200713
  3. DERMITOPIC [Concomitant]
     Indication: Dermatitis atopic
     Dosage: UNK
     Dates: start: 20200120
  4. EDELAN [Concomitant]
     Indication: Dermatitis atopic
     Dosage: UNK
     Dates: start: 20200902

REACTIONS (2)
  - Herpes simplex pharyngitis [Recovered/Resolved with Sequelae]
  - Pharyngitis bacterial [Recovered/Resolved with Sequelae]

NARRATIVE: CASE EVENT DATE: 20210728
